FAERS Safety Report 5814310-4 (Version None)
Quarter: 2008Q3

REPORT INFORMATION
  Report Type: 
  Country: None (occurrence: None)
  Receive Date: 20080711
  Receipt Date: 20080626
  Transmission Date: 20090109
  Serious: Yes (Hospitalization)
  Sender: FDA-Public Use
  Company Number: TRP_01097_2008

PATIENT
  Sex: Male

DRUGS (4)
  1. RIBASPHERE [Suspect]
     Indication: HEPATITIS C
     Dosage: 1000 MG ORAL
     Route: 048
     Dates: start: 20071230
  2. RIBASPHERE [Suspect]
     Indication: HEPATITIS C
     Dosage: 400 MG ORAL
     Route: 048
     Dates: start: 20080101
  3. RIBASHPHERE/RIBAVIRIN/THREE RIVERS PHARMA [Suspect]
     Indication: HEPATITIS C
     Dosage: 800 MG ORAL
     Route: 048
     Dates: start: 20080219
  4. PEGASYS [Suspect]
     Dosage: 180 ?G 1X/WEEK SUBCUTANEOUS
     Route: 058
     Dates: start: 20071230

REACTIONS (15)
  - ANAEMIA [None]
  - DEPRESSION [None]
  - DIZZINESS [None]
  - EPISTAXIS [None]
  - FATIGUE [None]
  - INCREASED UPPER AIRWAY SECRETION [None]
  - INSOMNIA [None]
  - LOSS OF CONSCIOUSNESS [None]
  - NAUSEA [None]
  - ORAL FUNGAL INFECTION [None]
  - OROPHARYNGEAL PAIN [None]
  - PNEUMONIA [None]
  - PYREXIA [None]
  - STOMATITIS [None]
  - WEIGHT DECREASED [None]
